FAERS Safety Report 5786330-X (Version None)
Quarter: 2008Q2

REPORT INFORMATION
  Report Type: 
  Country: None (occurrence: None)
  Receive Date: 20080624
  Receipt Date: 20070709
  Transmission Date: 20081010
  Serious: No
  Sender: FDA-Public Use
  Company Number: US-ASTRAZENECA-2007UW15995

PATIENT
  Age: 70 Year
  Sex: Female
  Weight: 59 kg

DRUGS (8)
  1. PULMICORT RESPULES [Suspect]
     Indication: CHRONIC OBSTRUCTIVE PULMONARY DISEASE
     Route: 055
     Dates: start: 20070525
  2. DUONEB [Concomitant]
  3. XOPENIX [Concomitant]
  4. PREDNISONE [Concomitant]
  5. VITAMIN D [Concomitant]
  6. CALTRATE [Concomitant]
  7. BONIVA [Concomitant]
  8. MULTI-VITAMIN [Concomitant]

REACTIONS (1)
  - DYSPNOEA [None]
